FAERS Safety Report 16740886 (Version 2)
Quarter: 2019Q3

REPORT INFORMATION
  Report Type: Spontaneous
  Country: US (occurrence: US)
  Receive Date: 20190826
  Receipt Date: 20190830
  Transmission Date: 20191005
  Serious: Yes (Hospitalization)
  Sender: FDA-Public Use
  Company Number: US-PFIZER INC-2019364264

PATIENT
  Age: 70 Year
  Sex: Male
  Weight: 81.63 kg

DRUGS (1)
  1. XALKORI [Suspect]
     Active Substance: CRIZOTINIB
     Indication: LUNG NEOPLASM MALIGNANT
     Dosage: 250 MG, 2X/DAY
     Route: 048
     Dates: start: 20190814

REACTIONS (6)
  - Herpes zoster [Unknown]
  - Pulmonary embolism [Unknown]
  - Gastrooesophageal reflux disease [Unknown]
  - Flushing [Unknown]
  - Pelvic pain [Unknown]
  - Rash [Unknown]

NARRATIVE: CASE EVENT DATE: 201908
